FAERS Safety Report 18864919 (Version 1)
Quarter: 2021Q1

REPORT INFORMATION
  Report Type: Spontaneous
  Country: GB (occurrence: GB)
  Receive Date: 20210209
  Receipt Date: 20210209
  Transmission Date: 20210420
  Serious: Yes (Other)
  Sender: FDA-Public Use
  Company Number: NVSC2021GB025380

PATIENT
  Age: 70 Year
  Sex: Female
  Weight: 63 kg

DRUGS (14)
  1. EVOREL [Concomitant]
     Indication: ILL-DEFINED DISORDER
     Dosage: (APPLY ONE PATCH) Q2W
     Route: 065
  2. PROCHLORPERAZINE. [Concomitant]
     Active Substance: PROCHLORPERAZINE
     Indication: ILL-DEFINED DISORDER
     Dosage: 1 DF, TID (WHWN REQUIRED)
     Route: 065
     Dates: start: 20200213
  3. EPADERM [Concomitant]
     Active Substance: MINERAL OIL\PETROLATUM\WAX, EMULSIFYING
     Indication: ILL-DEFINED DISORDER
     Dosage: (APPLY 2 TO 4 TIMES) QD
     Route: 065
     Dates: start: 20201013
  4. RANITIDINE. [Concomitant]
     Active Substance: RANITIDINE
     Indication: ILL-DEFINED DISORDER
     Dosage: 1 DF, QD (AT NIGHT)
     Route: 065
     Dates: start: 20200213
  5. SALBUTAMOL [Concomitant]
     Active Substance: ALBUTEROL
     Indication: ILL-DEFINED DISORDER
     Dosage: 2 PUFFS FOUR TIMES A DAY AS REQUIRED
     Route: 065
     Dates: start: 20200213
  6. FUROSEMIDE. [Concomitant]
     Active Substance: FUROSEMIDE
     Indication: ILL-DEFINED DISORDER
     Dosage: 2 (EVERY DAY)
     Route: 065
     Dates: start: 20200804
  7. TRAMBO [Concomitant]
     Indication: ILL-DEFINED DISORDER
     Dosage: TWO PUFFS TWICE DAILY
     Route: 065
     Dates: start: 20200213
  8. AMITRIPTYLINE HYDROCHLORIDE. [Concomitant]
     Active Substance: AMITRIPTYLINE HYDROCHLORIDE
     Indication: ILL-DEFINED DISORDER
     Dosage: (START WITH ONE AN HOUR BEFORE BED TIME)
     Route: 065
     Dates: start: 20201222
  9. CLOPIDOGREL [Concomitant]
     Active Substance: CLOPIDOGREL BISULFATE
     Indication: ILL-DEFINED DISORDER
     Dosage: 1 DF, QD
     Route: 065
     Dates: start: 20200213
  10. COCODAMOL [Concomitant]
     Active Substance: ACETAMINOPHEN\CODEINE PHOSPHATE
     Indication: ILL-DEFINED DISORDER
     Dosage: (TAKE 1 OR 2) QID
     Route: 065
     Dates: start: 20200213
  11. PREDNISOLONE. [Concomitant]
     Active Substance: PREDNISOLONE
     Indication: ILL-DEFINED DISORDER
     Dosage: 8 TABLETS (FOR 5 DAYS) EVERY MORNING
     Route: 065
     Dates: start: 20210125
  12. LANSOPRAZOLE. [Concomitant]
     Active Substance: LANSOPRAZOLE
     Indication: ILL-DEFINED DISORDER
     Dosage: (TAKE ONE ONCE DAILYINSTAED OF OMEPRAZOLE)
     Route: 065
     Dates: start: 20200213
  13. SERTRALINE [Concomitant]
     Active Substance: SERTRALINE HYDROCHLORIDE
     Indication: ILL-DEFINED DISORDER
     Dosage: UNK
     Route: 065
     Dates: start: 20200213
  14. CLARITHROMYCIN. [Suspect]
     Active Substance: CLARITHROMYCIN
     Indication: PRODUCT USED FOR UNKNOWN INDICATION
     Dosage: 1000 MG (500 MG IN 12 HOURS)
     Route: 065
     Dates: start: 20210125

REACTIONS (1)
  - Illness [Recovered/Resolved]

NARRATIVE: CASE EVENT DATE: 20210126
